FAERS Safety Report 8014488-0 (Version None)
Quarter: 2011Q4

REPORT INFORMATION
  Report Type: 
  Country: None (occurrence: None)
  Receive Date: 20111229
  Receipt Date: 20111219
  Transmission Date: 20120403
  Serious: Yes (Death)
  Sender: FDA-Public Use
  Company Number: US-PFIZER INC-2011309898

PATIENT
  Age: 52 Year
  Sex: Male

DRUGS (3)
  1. BARBITURATES [Suspect]
     Route: 048
  2. PHENYTOIN [Suspect]
     Route: 048
  3. LEVETIRACETAM [Suspect]
     Route: 048

REACTIONS (1)
  - ADVERSE REACTION [None]
